FAERS Safety Report 8076484-7 (Version None)
Quarter: 2011Q4

REPORT INFORMATION
  Report Type: 
  Country: None (occurrence: None)
  Receive Date: 20111221
  Receipt Date: 20101119
  Transmission Date: 20120403
  Serious: Yes (Other)
  Sender: FDA-Public Use
  Company Number: PHHY2010US45019

PATIENT
  Age: 55 Year
  Sex: Male
  Weight: 88.4 kg

DRUGS (6)
  1. EXJADE [Suspect]
     Indication: HEREDITARY HAEMOCHROMATOSIS
     Dosage: 125MG, DAILY, ORAL
     Route: 048
     Dates: start: 20100621
  2. DESFERAL [Concomitant]
  3. HYDROCHLOROTHAZIDE (HYDROCHLOROTHIAZIDE) [Concomitant]
  4. VITAMIN B COMPLEX CAP [Concomitant]
  5. BLOOD TRANSFUSION, AUXILIARY PRODUCTS (NO INGREDIENTS/SUBSTANCES) [Concomitant]
  6. WARFARIN SODIUM [Concomitant]

REACTIONS (5)
  - JOINT SWELLING [None]
  - TINNITUS [None]
  - OTOSCOPY ABNORMAL [None]
  - DEAFNESS [None]
  - DIARRHOEA [None]
